FAERS Safety Report 13484089 (Version 1)
Quarter: 2017Q2

REPORT INFORMATION
  Report Type: Spontaneous
  Country: US (occurrence: US)
  Receive Date: 20170425
  Receipt Date: 20170425
  Transmission Date: 20170830
  Serious: No
  Sender: FDA-Public Use
  Company Number: US-ASTRAZENECA-2017SE42466

PATIENT
  Sex: Female
  Weight: 103.4 kg

DRUGS (4)
  1. FARXIGA [Suspect]
     Active Substance: DAPAGLIFLOZIN PROPANEDIOL
     Indication: TYPE 2 DIABETES MELLITUS
     Route: 048
  2. BYETTA [Suspect]
     Active Substance: EXENATIDE
     Indication: TYPE 2 DIABETES MELLITUS
     Dosage: 10.0UG UNKNOWN
     Route: 058
  3. BYETTA [Suspect]
     Active Substance: EXENATIDE
     Indication: TYPE 2 DIABETES MELLITUS
     Dosage: 250 MCG / 1.2 ML PEN 5 MCG TWO TIMES A DAY UNKNOWN
     Route: 058
     Dates: start: 20170414
  4. BYETTA [Suspect]
     Active Substance: EXENATIDE
     Indication: TYPE 2 DIABETES MELLITUS
     Route: 058
     Dates: start: 2013

REACTIONS (10)
  - Memory impairment [Unknown]
  - Depressed mood [Unknown]
  - Syncope [Unknown]
  - Blood glucose decreased [Unknown]
  - Palpitations [Unknown]
  - Malaise [Unknown]
  - Tremor [Unknown]
  - Erythema [Unknown]
  - Product quality issue [Unknown]
  - Drug dose omission [Unknown]
